FAERS Safety Report 8298735-6 (Version None)
Quarter: 2012Q2

REPORT INFORMATION
  Report Type: 
  Country: None (occurrence: None)
  Receive Date: 20120417
  Receipt Date: 20120417
  Transmission Date: 20120825
  Serious: Yes (Other)
  Sender: FDA-Public Use
  Company Number: None

PATIENT
  Age: 23 Year
  Sex: Female
  Weight: 51.2565 kg

DRUGS (2)
  1. FLUOXETINE [Suspect]
     Indication: EATING DISORDER
     Dates: start: 20111101
  2. FLUOXETINE [Suspect]
     Indication: OBSESSIVE-COMPULSIVE DISORDER
     Dates: start: 20111101

REACTIONS (12)
  - HEART RATE IRREGULAR [None]
  - AMNESIA [None]
  - AGITATION [None]
  - PANIC ATTACK [None]
  - EUPHORIC MOOD [None]
  - ABNORMAL BEHAVIOUR [None]
  - ARTHRALGIA [None]
  - AGGRESSION [None]
  - IRRITABILITY [None]
  - INSOMNIA [None]
  - HOSTILITY [None]
  - IMPULSIVE BEHAVIOUR [None]
